FAERS Safety Report 9713697 (Version 2)
Quarter: 2013Q4

REPORT INFORMATION
  Report Type: Spontaneous
  Country: VE (occurrence: VE)
  Receive Date: 20131126
  Receipt Date: 20131205
  Transmission Date: 20140711
  Serious: Yes (Death)
  Sender: FDA-Public Use
  Company Number: VE-PFIZER INC-2013334261

PATIENT
  Age: 84 Year
  Sex: Female

DRUGS (1)
  1. CADUET [Suspect]
     Dosage: 5/20 MG, 1X/DAY
     Route: 048
     Dates: start: 2007

REACTIONS (1)
  - Respiratory arrest [Fatal]
